FAERS Safety Report 5010471-8 (Version None)
Quarter: 2006Q2

REPORT INFORMATION
  Report Type: 
  Country: None (occurrence: None)
  Receive Date: 20060523
  Receipt Date: 20060510
  Transmission Date: 20061013
  Serious: Yes (Other)
  Sender: FDA-Public Use
  Company Number: 224353

PATIENT
  Age: 60 Year
  Sex: Male
  Weight: 84.4 kg

DRUGS (13)
  1. RAPTIVA [Suspect]
     Indication: PSORIASIS
     Dosage: 80 MG, 1/WEEK, SUBCUTANEOUS
     Route: 058
     Dates: start: 20050525, end: 20060414
  2. CYCLOSPORINE [Concomitant]
  3. OXSORALEN (METHOXSALEN) [Concomitant]
  4. UVA THERAPY (PHOTOTHERAPY UVA) [Concomitant]
  5. LIPITOR [Concomitant]
  6. NIASPAN ER (NIACIN) [Concomitant]
  7. ZYRTEC [Concomitant]
  8. ZOLOFT [Concomitant]
  9. ASPIRIN [Concomitant]
  10. VITAMIN B (VITAMIN B NOS) [Concomitant]
  11. ASCORBIC ACID [Concomitant]
  12. VITAMIN E [Concomitant]
  13. FISH OIL (FISH OIL) [Concomitant]

REACTIONS (4)
  - DEHYDRATION [None]
  - PERIPHERAL T-CELL LYMPHOMA UNSPECIFIED [None]
  - SINUS DISORDER [None]
  - SYNCOPE [None]
